FAERS Safety Report 9464025 (Version 1)
Quarter: 2013Q3

REPORT INFORMATION
  Report Type: Spontaneous
  Country: US (occurrence: US)
  Receive Date: 20130819
  Receipt Date: 20130819
  Transmission Date: 20140515
  Serious: No
  Sender: FDA-Public Use
  Company Number: US-BRISTOL-MYERS SQUIBB COMPANY-19003722

PATIENT
  Age: 49 Year
  Sex: Male
  Weight: 70.75 kg

DRUGS (1)
  1. REYATAZ [Suspect]
     Route: 048

REACTIONS (3)
  - Pruritus [Unknown]
  - Swelling face [Unknown]
  - Myalgia [Unknown]
